FAERS Safety Report 4873733-0 (Version None)
Quarter: 2006Q1

REPORT INFORMATION
  Report Type: 
  Country: None (occurrence: None)
  Receive Date: 20060106
  Receipt Date: 20050913
  Transmission Date: 20060701
  Serious: Yes (Hospitalization)
  Sender: FDA-Public Use
  Company Number: 2005CG01530

PATIENT
  Age: 13700 Day
  Sex: Male

DRUGS (4)
  1. QUETIAPINE FUMARATE [Suspect]
     Route: 048
     Dates: end: 20050810
  2. QUETIAPINE FUMARATE [Suspect]
     Route: 048
     Dates: start: 20050810, end: 20050815
  3. LORAZEPAM [Concomitant]
  4. VENLAFAXINE HCL [Concomitant]
     Indication: DEPRESSION
     Route: 048
     Dates: start: 20050614

REACTIONS (1)
  - PSYCHOTIC DISORDER [None]
